FAERS Safety Report 6268316-4 (Version None)
Quarter: 2009Q3

REPORT INFORMATION
  Report Type: 
  Country: None (occurrence: None)
  Receive Date: 20090710
  Receipt Date: 20090710
  Transmission Date: 20100115
  Serious: Yes (Other)
  Sender: FDA-Public Use
  Company Number: None

PATIENT
  Age: 54 Year
  Sex: Female

DRUGS (2)
  1. OTRIVIN [Suspect]
     Indication: NASOPHARYNGITIS
     Dosage: 3-4 TIMES A DAY
  2. OTRIVIN [Suspect]
     Indication: PROPHYLAXIS
     Dosage: 3-4 TIMES A DAY

REACTIONS (2)
  - DRUG DEPENDENCE [None]
  - INTENTIONAL DRUG MISUSE [None]
